FAERS Safety Report 5279994-0 (Version None)
Quarter: 2007Q1

REPORT INFORMATION
  Report Type: 
  Country: None (occurrence: None)
  Receive Date: 20061215
  Receipt Date: 20060503
  Transmission Date: 20070707
  Serious: Yes (Life-Threatening, Hospitalization, Other)
  Sender: FDA-Public Use
  Company Number: HQWYE195405MAY06

PATIENT
  Age: 68 Year
  Sex: Female
  Weight: 88.08 kg

DRUGS (15)
  1. EFFEXOR XR [Suspect]
     Indication: DEPRESSION
     Dosage: 150 MG 1 X PER 1 DAY, ORAL
     Route: 048
     Dates: start: 20060429, end: 20060429
  2. TOPROL-XL [Concomitant]
  3. DIOVAN [Concomitant]
  4. NITROL [Concomitant]
  5. AVANDAMET [Concomitant]
  6. PRANDIN [Concomitant]
  7. LASIX [Concomitant]
  8. PRILOSEC [Concomitant]
  9. FERROUS SULFATE TAB [Concomitant]
  10. CITRACAL (CALCIUM CITRATE) [Concomitant]
  11. VITAMIN D [Concomitant]
  12. ASPIRIN [Concomitant]
  13. TAMOXIFEN CITRATE [Concomitant]
  14. VYTORIN [Concomitant]
  15. AMBIEN [Concomitant]

REACTIONS (1)
  - VOMITING [None]
